FAERS Safety Report 8204130-8 (Version None)
Quarter: 2012Q1

REPORT INFORMATION
  Report Type: 
  Country: None (occurrence: None)
  Receive Date: 20120313
  Receipt Date: 20120306
  Transmission Date: 20120608
  Serious: Yes (Other)
  Sender: FDA-Public Use
  Company Number: US-BAYER-2011-106136

PATIENT
  Age: 37 Year
  Sex: Female

DRUGS (12)
  1. AVELOX [Suspect]
     Indication: SINUSITIS
     Dosage: UNK
     Dates: start: 20111027
  2. LEVOCETIRIZINE DIHYDROCHLORIDE [Concomitant]
  3. SYNTHROID [Concomitant]
  4. METOPROLOL SUCCINATE [Concomitant]
  5. LORATADINE [Concomitant]
  6. SINGULAIR [Concomitant]
  7. VERAMYST [Concomitant]
  8. HYDROCHLOROTHIAZIDE [Concomitant]
  9. LIPITOR [Concomitant]
  10. ALTACE [Concomitant]
  11. CITALOPRAM [Concomitant]
  12. PREDNISONE [Concomitant]

REACTIONS (8)
  - RASH [None]
  - DYSPNOEA [None]
  - DIZZINESS [None]
  - CHEST DISCOMFORT [None]
  - FLUSHING [None]
  - ANAPHYLACTIC REACTION [None]
  - VOMITING [None]
  - NAUSEA [None]
